FAERS Safety Report 6572908-2 (Version None)
Quarter: 2010Q1

REPORT INFORMATION
  Report Type: 
  Country: None (occurrence: None)
  Receive Date: 20100207
  Receipt Date: 20100129
  Transmission Date: 20100710
  Serious: Yes (Hospitalization)
  Sender: FDA-Public Use
  Company Number: US-BRISTOL-MYERS SQUIBB COMPANY-14955793

PATIENT
  Age: 18 Year
  Sex: Female
  Weight: 51 kg

DRUGS (8)
  1. DASATINIB [Suspect]
     Indication: ACUTE LYMPHOCYTIC LEUKAEMIA
     Dosage: DAYS 1- 14 C2 STARTED 30DEC09
     Route: 048
     Dates: start: 20091209
  2. IFOSFAMIDE [Suspect]
     Indication: ACUTE LYMPHOCYTIC LEUKAEMIA
     Dosage: DAY 1 - 5
     Route: 042
     Dates: start: 20091209, end: 20100103
  3. ETOPOSIDE [Suspect]
     Indication: ACUTE LYMPHOCYTIC LEUKAEMIA
     Dosage: DAYS 1 - 5
     Route: 042
     Dates: start: 20091209, end: 20100103
  4. HYDROCORTISONE [Suspect]
     Indication: ACUTE LYMPHOCYTIC LEUKAEMIA
     Dosage: DAY 1
     Route: 039
     Dates: start: 20091209, end: 20091230
  5. CYTARABINE [Suspect]
     Indication: ACUTE LYMPHOCYTIC LEUKAEMIA
     Route: 039
     Dates: start: 20091209, end: 20091230
  6. METHOTREXATE [Suspect]
     Dosage: DAY 1
     Route: 039
     Dates: start: 20091209, end: 20091230
  7. NORGESTIMATE AND ETHINYL ESTRADIOL [Suspect]
     Dates: end: 20100103
  8. PEG-L-ASPARAGINASE [Suspect]
     Dates: start: 20091128, end: 20091128

REACTIONS (1)
  - EMBOLISM [None]
